FAERS Safety Report 5358155-0 (Version None)
Quarter: 2007Q2

REPORT INFORMATION
  Report Type: 
  Country: None (occurrence: None)
  Receive Date: 20070530
  Receipt Date: 20061018
  Transmission Date: 20071010
  Serious: Yes (Other)
  Sender: FDA-Public Use
  Company Number: US200605005436

PATIENT
  Sex: Female
  Weight: 90.7 kg

DRUGS (7)
  1. ZYPREXA [Suspect]
     Dosage: SEE IMAGE
     Dates: start: 20020308
  2. ARIPIPRAZOLE [Concomitant]
  3. QUETIAPINE FUMARATE [Concomitant]
  4. DIVALPROEX SODIUM [Concomitant]
  5. BUPROPION HCL [Concomitant]
  6. CITALOPRAM HYDROBROMIDE [Concomitant]
  7. NEFAZODONE HCL [Concomitant]

REACTIONS (2)
  - DIABETES MELLITUS [None]
  - PANCREATITIS [None]
